FAERS Safety Report 10807837 (Version 1)
Quarter: 2015Q1

REPORT INFORMATION
  Report Type: Report from Study
  Country: PR (occurrence: PR)
  Receive Date: 20150217
  Receipt Date: 20150217
  Transmission Date: 20150721
  Serious: No
  Sender: FDA-Public Use
  Company Number: PR-ABBVIE-14K-131-1315560-00

PATIENT
  Age: 49 Year
  Sex: Female

DRUGS (2)
  1. VASOTEC [Concomitant]
     Active Substance: ENALAPRIL MALEATE
     Indication: PRODUCT USED FOR UNKNOWN INDICATION
  2. HUMIRA [Suspect]
     Active Substance: ADALIMUMAB
     Indication: PSORIASIS
     Route: 058
     Dates: start: 20140917

REACTIONS (2)
  - Urinary tract infection [Recovering/Resolving]
  - Escherichia test positive [Unknown]

NARRATIVE: CASE EVENT DATE: 20140924
